FAERS Safety Report 12227552 (Version 1)
Quarter: 2016Q1

REPORT INFORMATION
  Report Type: Report from Study
  Country: US (occurrence: US)
  Receive Date: 20160331
  Receipt Date: 20160331
  Transmission Date: 20160526
  Serious: Yes (Hospitalization, Other)
  Sender: FDA-Public Use
  Company Number: US-AMGEN-USASL2016038568

PATIENT
  Age: 58 Year
  Sex: Female

DRUGS (1)
  1. ENBREL [Suspect]
     Active Substance: ETANERCEPT
     Indication: PRODUCT USED FOR UNKNOWN INDICATION
     Dosage: 50 MG, QWKLY
     Route: 065

REACTIONS (5)
  - Type 1 diabetes mellitus [Unknown]
  - Blood glucose increased [Unknown]
  - Osteomyelitis [Unknown]
  - Blister [Unknown]
  - Skin ulcer [Unknown]

NARRATIVE: CASE EVENT DATE: 201505
